FAERS Safety Report 8968917 (Version 1)
Quarter: 2012Q4

REPORT INFORMATION
  Report Type: Spontaneous
  Country: US (occurrence: None)
  Receive Date: 20121214
  Receipt Date: 20121214
  Transmission Date: 20130627
  Serious: No
  Sender: FDA-Public Use
  Company Number: None

PATIENT

DRUGS (1)
  1. HCG [Suspect]
     Indication: OBESITY
     Dosage: 3 drops daily sublingual
     Route: 060
     Dates: start: 2010, end: 2012

REACTIONS (2)
  - No adverse event [None]
  - Medication error [None]
